FAERS Safety Report 15470473 (Version 1)
Quarter: 2018Q4

REPORT INFORMATION
  Report Type: Spontaneous
  Country: US (occurrence: US)
  Receive Date: 20181005
  Receipt Date: 20181005
  Transmission Date: 20190205
  Serious: No
  Sender: FDA-Public Use
  Company Number: US-PERRIGO-18US006764

PATIENT
  Age: 89 Year
  Sex: Female
  Weight: 40.82 kg

DRUGS (5)
  1. OASIS TEARS [Suspect]
     Active Substance: GLYCERIN
     Indication: DRY EYE
     Dosage: 1 DROP BOTH EYES, BID
     Route: 047
     Dates: start: 20180612
  2. FUROSEMIDE. [Concomitant]
     Active Substance: FUROSEMIDE
     Indication: BLOOD PRESSURE ABNORMAL
     Dosage: UNK
     Route: 065
  3. NEO-POLYCIN [Suspect]
     Active Substance: BACITRACIN ZINC\NEOMYCIN SULFATE\POLYMYXIN B SULFATE
     Indication: EYE INFECTION
     Dosage: FINGERTIP AMOUNT, QHS
     Route: 047
     Dates: start: 20180616
  4. LATANOPROST. [Suspect]
     Active Substance: LATANOPROST
     Indication: GLAUCOMA
     Dosage: 1 DROP BOTH EYES, QHS
     Route: 047
     Dates: start: 20180612
  5. VITAMINS NOS [Concomitant]
     Active Substance: VITAMINS
     Indication: SUPPLEMENTATION THERAPY
     Dosage: UNK
     Route: 065

REACTIONS (2)
  - Application site pain [Not Recovered/Not Resolved]
  - Vision blurred [Not Recovered/Not Resolved]

NARRATIVE: CASE EVENT DATE: 201806
